FAERS Safety Report 6028235-5 (Version None)
Quarter: 2008Q4

REPORT INFORMATION
  Report Type: 
  Country: None (occurrence: None)
  Receive Date: 20081231
  Receipt Date: 20081231
  Transmission Date: 20090506
  Serious: Yes (Hospitalization)
  Sender: FDA-Public Use
  Company Number: None

PATIENT
  Age: 66 Year
  Sex: Male

DRUGS (1)
  1. HEPARIN [Suspect]
     Indication: DEEP VEIN THROMBOSIS
     Dosage: NOMOGRAM
     Dates: start: 20080602, end: 20080604

REACTIONS (2)
  - DEEP VEIN THROMBOSIS [None]
  - THROMBOCYTOPENIA [None]
